FAERS Safety Report 5170079-0 (Version None)
Quarter: 2006Q4

REPORT INFORMATION
  Report Type: 
  Country: None (occurrence: None)
  Receive Date: 20061212
  Receipt Date: 20061201
  Transmission Date: 20070319
  Serious: Yes (Hospitalization)
  Sender: FDA-Public Use
  Company Number: US-PURDUE-USA_2006_0025859

PATIENT
  Age: 36 Year
  Sex: Female

DRUGS (1)
  1. MS CONTIN [Suspect]
     Indication: PAIN
     Dosage: UNK UNK, UNK
     Route: 065

REACTIONS (4)
  - DECREASED APPETITE [None]
  - HAEMATEMESIS [None]
  - JOINT DISLOCATION [None]
  - WEIGHT DECREASED [None]
